FAERS Safety Report 16909934 (Version 2)
Quarter: 2019Q4

REPORT INFORMATION
  Report Type: Spontaneous
  Country: BR (occurrence: BR)
  Receive Date: 20191011
  Receipt Date: 20191029
  Transmission Date: 20200122
  Serious: Yes (Hospitalization)
  Sender: FDA-Public Use
  Company Number: BR-NAPPMUNDI-GBR-2019-0071368

PATIENT
  Age: 48 Year
  Sex: Female

DRUGS (1)
  1. OXYCONTIN [Suspect]
     Active Substance: OXYCODONE HYDROCHLORIDE
     Indication: BURSITIS
     Dosage: 10 MG, Q12H (1 PILL EVERY 12 HOURS FOR 7 DAYS)
     Route: 048
     Dates: start: 20190929, end: 20190929

REACTIONS (14)
  - Loss of consciousness [Unknown]
  - Tinnitus [Unknown]
  - Chills [Unknown]
  - Agitation [Unknown]
  - Paraesthesia oral [Unknown]
  - Unevaluable event [Unknown]
  - Dysstasia [Unknown]
  - Hypoaesthesia [Unknown]
  - Nausea [Not Recovered/Not Resolved]
  - Dyspnoea [Unknown]
  - Paralysis [Not Recovered/Not Resolved]
  - Dizziness [Not Recovered/Not Resolved]
  - Headache [Not Recovered/Not Resolved]
  - Malaise [Not Recovered/Not Resolved]

NARRATIVE: CASE EVENT DATE: 20190929
